FAERS Safety Report 11313409 (Version 3)
Quarter: 2016Q4

REPORT INFORMATION
  Report Type: Spontaneous
  Country: US (occurrence: US)
  Receive Date: 20150727
  Receipt Date: 20161227
  Transmission Date: 20170206
  Serious: Yes (Other)
  Sender: FDA-Public Use
  Company Number: US-PFIZER INC-2015246885

PATIENT
  Age: 85 Year
  Sex: Female
  Weight: 59.86 kg

DRUGS (2)
  1. ASPIRIN. [Concomitant]
     Active Substance: ASPIRIN
     Indication: EXTRASYSTOLES
     Dosage: UNK, 1X/DAY
  2. LATANOPROST. [Suspect]
     Active Substance: LATANOPROST
     Indication: GLAUCOMA
     Dosage: 1 DF, 1X/DAY (ONE DROP IN EACH EYE EVERY NIGHT)
     Route: 047

REACTIONS (8)
  - Confusional state [Not Recovered/Not Resolved]
  - Deafness [Not Recovered/Not Resolved]
  - Eye pain [Recovering/Resolving]
  - Condition aggravated [Not Recovered/Not Resolved]
  - Intraocular pressure increased [Unknown]
  - Visual impairment [Not Recovered/Not Resolved]
  - Arthritis [Not Recovered/Not Resolved]
  - Drug ineffective [Unknown]
